FAERS Safety Report 8622343-8 (Version None)
Quarter: 2012Q3

REPORT INFORMATION
  Report Type: 
  Country: None (occurrence: None)
  Receive Date: 20120827
  Receipt Date: 20120820
  Transmission Date: 20120928
  Serious: No
  Sender: FDA-Public Use
  Company Number: US-BIOGENIDEC-2011BI028122

PATIENT
  Age: 45 Year
  Sex: Male

DRUGS (1)
  1. TYSABRI [Suspect]
     Indication: MULTIPLE SCLEROSIS
     Route: 042
     Dates: start: 20110217

REACTIONS (5)
  - VISUAL IMPAIRMENT [None]
  - DRUG EFFECT DECREASED [None]
  - VISION BLURRED [None]
  - MULTIPLE SCLEROSIS [None]
  - HYPOAESTHESIA [None]
